FAERS Safety Report 4781850-9 (Version None)
Quarter: 2005Q3

REPORT INFORMATION
  Report Type: 
  Country: None (occurrence: None)
  Receive Date: 20050927
  Receipt Date: 20050913
  Transmission Date: 20060218
  Serious: Yes (Hospitalization, Other)
  Sender: FDA-Public Use
  Company Number: USA0507104025

PATIENT
  Age: 71 Year
  Sex: Female
  Weight: 73 kg

DRUGS (2)
  1. HUMULIN N [Suspect]
     Dosage: 15 U/2 DAY
  2. INSULIN [Suspect]

REACTIONS (8)
  - ARTERIAL THERAPEUTIC PROCEDURE [None]
  - ARTHRITIS [None]
  - BLOOD GLUCOSE INCREASED [None]
  - BREAST CANCER FEMALE [None]
  - CORONARY ARTERY SURGERY [None]
  - GLAUCOMA [None]
  - HERNIA REPAIR [None]
  - PNEUMONIA [None]
